FAERS Safety Report 5311511-9 (Version None)
Quarter: 2007Q2

REPORT INFORMATION
  Report Type: 
  Country: None (occurrence: None)
  Receive Date: 20070430
  Receipt Date: 20070417
  Transmission Date: 20071010
  Serious: Yes (Hospitalization)
  Sender: FDA-Public Use
  Company Number: FR-GLAXOSMITHKLINE-B0451276A

PATIENT
  Age: 41 Year
  Sex: Female

DRUGS (6)
  1. ZOPHREN [Suspect]
     Route: 048
     Dates: start: 20060927, end: 20061018
  2. ENDOXAN [Suspect]
     Dosage: 950MG CYCLIC
     Route: 042
     Dates: start: 20060927, end: 20061018
  3. PRIMPERAN INJ [Suspect]
     Route: 048
     Dates: start: 20060927, end: 20061018
  4. FARMORUBICINE [Suspect]
     Dosage: 190MG CYCLIC
     Route: 042
     Dates: start: 20060927, end: 20061018
  5. FLUOROURACIL [Suspect]
     Dosage: 950MG CYCLIC
     Route: 042
     Dates: start: 20060927, end: 20061018
  6. MEDROL [Concomitant]
     Route: 048
     Dates: start: 20060927, end: 20060927

REACTIONS (8)
  - COUGH [None]
  - CRYPTOGENIC ORGANISING PNEUMONIA [None]
  - DYSPNOEA AT REST [None]
  - HYPOXIA [None]
  - OBSTRUCTIVE AIRWAYS DISORDER [None]
  - ORTHOPNOEA [None]
  - RALES [None]
  - RESTRICTIVE PULMONARY DISEASE [None]
